FAERS Safety Report 7825208-4 (Version None)
Quarter: 2011Q4

REPORT INFORMATION
  Report Type: 
  Country: None (occurrence: None)
  Receive Date: 20111019
  Receipt Date: 20111013
  Transmission Date: 20120403
  Serious: Yes (Hospitalization, Other)
  Sender: FDA-Public Use
  Company Number: JP-PFIZER INC-2011242619

PATIENT
  Age: 79 Year
  Sex: Male

DRUGS (5)
  1. FAMOTIDINE [Suspect]
     Dosage: 20 MG, 1X/DAY
     Route: 048
     Dates: end: 20111005
  2. MYONAL [Suspect]
     Dosage: UNK
     Dates: end: 20111004
  3. CELECOXIB [Suspect]
     Dosage: 100 MG, 2X/DAY
     Route: 048
     Dates: start: 20110922, end: 20111004
  4. TIZANIDINE HCL [Suspect]
  5. TOUGHMAC E [Suspect]
     Dosage: UNK

REACTIONS (2)
  - HYPOGLYCAEMIA [None]
  - INSULIN AUTOIMMUNE SYNDROME [None]
